FAERS Safety Report 19945258 (Version 2)
Quarter: 2021Q4

REPORT INFORMATION
  Report Type: Spontaneous
  Country: US (occurrence: US)
  Receive Date: 20211012
  Receipt Date: 20211108
  Transmission Date: 20220303
  Serious: Yes (Other)
  Sender: FDA-Public Use
  Company Number: US-ELI_LILLY_AND_COMPANY-US202110002067

PATIENT
  Sex: Female
  Weight: 125 kg

DRUGS (4)
  1. INSULIN LISPRO [Suspect]
     Active Substance: INSULIN LISPRO
     Indication: Type 2 diabetes mellitus
     Dosage: 17 U, DAILY
     Route: 058
     Dates: start: 20210708
  2. INSULIN LISPRO [Suspect]
     Active Substance: INSULIN LISPRO
     Indication: Type 2 diabetes mellitus
     Dosage: 17 U, DAILY
     Route: 058
     Dates: start: 20210708
  3. INSULIN LISPRO [Suspect]
     Active Substance: INSULIN LISPRO
     Dosage: 17 U, DAILY
     Route: 058
     Dates: start: 20210708
  4. INSULIN LISPRO [Suspect]
     Active Substance: INSULIN LISPRO
     Dosage: 17 U, DAILY
     Route: 058
     Dates: start: 20210708

REACTIONS (1)
  - Illness [Not Recovered/Not Resolved]
